FAERS Safety Report 6667230-X (Version None)
Quarter: 2010Q2

REPORT INFORMATION
  Report Type: 
  Country: None (occurrence: None)
  Receive Date: 20100401
  Receipt Date: 20100324
  Transmission Date: 20101027
  Serious: Yes (Death, Other)
  Sender: FDA-Public Use
  Company Number: AMAG201000182

PATIENT
  Age: 71 Year
  Sex: Male

DRUGS (17)
  1. FERAHEME [Suspect]
     Indication: IRON DEFICIENCY ANAEMIA
     Dosage: 510 MG, SINGLE, INTRAVENOUS
     Route: 042
     Dates: start: 20100308, end: 20100308
  2. CARBOPLATIN [Suspect]
     Indication: CHEMOTHERAPY
     Dosage: 450 MG, SINGLE, INTRAVENOUS
     Route: 042
     Dates: start: 20100308, end: 20100308
  3. AVASTIN [Suspect]
     Indication: CHEMOTHERAPY
     Dosage: 110 MG, SINGLE, INTRAVENOUS
     Route: 042
     Dates: start: 20100308, end: 20100308
  4. ALIMTA [Suspect]
     Indication: CHEMOTHERAPY
     Dosage: 1000 MG, SINGLE, INTRAVENOUS
     Route: 042
     Dates: start: 20100308, end: 20100308
  5. ALOXI [Concomitant]
  6. BENADRYL [Concomitant]
  7. DECADRON [Concomitant]
  8. COUMADIN [Concomitant]
  9. ZANTAC 150 [Concomitant]
  10. METFORMIN HCL [Concomitant]
  11. GLUCOPHAGE [Concomitant]
  12. ZIAC [Concomitant]
  13. MIRALAX [Concomitant]
  14. MORPHINE SULFATE INJ [Concomitant]
  15. OXYCODONE HCL [Concomitant]
  16. SULFAMETHOXAZOLE [Concomitant]
  17. VITAMIN B12          (HYDROXOCOBALAMIN) [Concomitant]

REACTIONS (8)
  - AGITATION [None]
  - CARDIAC ARREST [None]
  - DYSPNOEA [None]
  - FALL [None]
  - INTERNATIONAL NORMALISED RATIO DECREASED [None]
  - OXYGEN SATURATION DECREASED [None]
  - PALLOR [None]
  - RESPIRATORY ARREST [None]
